FAERS Safety Report 13173647 (Version 1)
Quarter: 2017Q1

REPORT INFORMATION
  Report Type: Spontaneous
  Country: None (occurrence: US)
  Receive Date: 20170130
  Receipt Date: 20170130
  Transmission Date: 20170428
  Serious: No
  Sender: FDA-Public Use
  Company Number: None

PATIENT
  Age: 23 Year
  Sex: Male

DRUGS (1)
  1. HUMIRA [Suspect]
     Active Substance: ADALIMUMAB
     Indication: CROHN^S DISEASE
     Route: 058
     Dates: start: 20160101

REACTIONS (5)
  - Fatigue [None]
  - Vein disorder [None]
  - Feeling abnormal [None]
  - Feeling hot [None]
  - Weight increased [None]

NARRATIVE: CASE EVENT DATE: 20160301
